FAERS Safety Report 9159135 (Version 2)
Quarter: 2013Q1

REPORT INFORMATION
  Report Type: Spontaneous
  Country: US (occurrence: None)
  Receive Date: 20130212
  Receipt Date: 20130319
  Transmission Date: 20140127
  Serious: Yes (Other)
  Sender: FDA-Public Use
  Company Number: US-TORRENT-00000567

PATIENT
  Age: 68 Year
  Sex: Female

DRUGS (6)
  1. ZOLPIDEM [Suspect]
     Dosage: 1 TABLET
  2. TRAMADOL (TRAMADOL) [Concomitant]
  3. PANTOPRAZOLE (PANTOPRAZOLE) [Concomitant]
  4. GABAPENTIN (GABAPENTIN) [Concomitant]
  5. LEVOTHYROXINE 100MG (LEVOTHYROXINE) [Concomitant]
  6. MELOXIC [Concomitant]

REACTIONS (6)
  - Confusional state [None]
  - Loss of consciousness [None]
  - Road traffic accident [None]
  - Abnormal behaviour [None]
  - Altered state of consciousness [None]
  - Impaired driving ability [None]
